FAERS Safety Report 8434270-X (Version None)
Quarter: 2012Q2

REPORT INFORMATION
  Report Type: 
  Country: None (occurrence: None)
  Receive Date: 20120613
  Receipt Date: 20120605
  Transmission Date: 20120825
  Serious: Yes (Hospitalization)
  Sender: FDA-Public Use
  Company Number: JP-FRI-1000031260

PATIENT
  Age: 59 Year
  Sex: Female

DRUGS (9)
  1. ARICEPT [Suspect]
     Dosage: 10 MG
  2. ZOLOFT [Concomitant]
     Dosage: 50 MG
  3. ZOLOFT [Concomitant]
     Dosage: DECREASED DOSE
  4. MEMANTINE HCL [Suspect]
     Indication: DEMENTIA WITH LEWY BODIES
     Dosage: 5 MG
     Route: 048
     Dates: end: 20111007
  5. ARICEPT [Suspect]
     Dosage: 5 MG
  6. MEMANTINE HCL [Suspect]
     Dosage: 10 MG
     Route: 048
     Dates: start: 20111008
  7. GRAMALIL [Concomitant]
     Dosage: DECREASED DOSE
  8. MADOPAR [Suspect]
     Dosage: 6 TABLETS
  9. GRAMALIL [Concomitant]
     Dosage: 50 MG

REACTIONS (3)
  - DELUSION [None]
  - HALLUCINATION [None]
  - DRUG INTERACTION [None]
